FAERS Safety Report 4637565-0 (Version None)
Quarter: 2005Q2

REPORT INFORMATION
  Report Type: 
  Country: None (occurrence: None)
  Receive Date: 20050418
  Receipt Date: 20050408
  Transmission Date: 20051028
  Serious: Yes (Hospitalization, Disabling)
  Sender: FDA-Public Use
  Company Number: US-BOEHRINGER INGELHEIM PHARMACEUTICALS, INC.-2005-BP-05879BP

PATIENT
  Sex: Male
  Weight: 52.6 kg

DRUGS (1)
  1. TIPRANAVIR / RITONAVIR CAPSULES [Suspect]
     Indication: HIV INFECTION
     Dosage: TPV/R 1000 MG / 400 MG
     Route: 055
     Dates: start: 20050304

REACTIONS (10)
  - ANAEMIA [None]
  - ASTHENIA [None]
  - CULTURE POSITIVE [None]
  - DECUBITUS ULCER [None]
  - DIARRHOEA [None]
  - HISTOPLASMOSIS DISSEMINATED [None]
  - HYPERTENSION [None]
  - INTERVERTEBRAL DISC PROTRUSION [None]
  - STAPHYLOCOCCAL INFECTION [None]
  - THERAPY NON-RESPONDER [None]
